FAERS Safety Report 19162911 (Version 1)
Quarter: 2021Q2

REPORT INFORMATION
  Report Type: Spontaneous
  Country: SE (occurrence: SE)
  Receive Date: 20210421
  Receipt Date: 20210421
  Transmission Date: 20210717
  Serious: Yes (Other)
  Sender: FDA-Public Use
  Company Number: SE-TEVA-2021-SE-1902533

PATIENT
  Age: 29 Year
  Sex: Female

DRUGS (6)
  1. LAMOTRIGINE. [Suspect]
     Active Substance: LAMOTRIGINE
     Indication: ANXIETY
     Route: 048
     Dates: start: 202010
  2. QUETIAPIN 1A FARMA 50 MG DEPOTTABLETT [Concomitant]
     Dosage: 50MG
     Route: 048
     Dates: start: 20200903
  3. DIZMINELLE 0,02 MG/3 MG FILMDRAGERAD TABLETT [Concomitant]
     Dosage: 1DF
     Route: 048
     Dates: start: 20181205
  4. OXASCAND 15 MG TABLETT [Concomitant]
     Active Substance: OXAZEPAM
     Dosage: 0.5?1 TABLET IF NEEDED, MAXIMUM 3 TABLETS PER DAY
     Route: 048
     Dates: start: 20181206
  5. VOXRA 150 MG TABLETT MED MODIFIERAD FRISATTNING [Concomitant]
     Dosage: 150MG
     Route: 048
     Dates: start: 20200726
  6. PROPAVAN 25 MG TABLETT [Concomitant]
     Active Substance: PROPIOMAZINE
     Dosage: 1?2 TABLETS AT NIGHT IF NEEDED, MAXIMUM 2 TABLETS PER DAY ORALLY
     Route: 048
     Dates: start: 20190524

REACTIONS (1)
  - Skin reaction [Unknown]

NARRATIVE: CASE EVENT DATE: 20201015
